FAERS Safety Report 4845257-8 (Version None)
Quarter: 2005Q4

REPORT INFORMATION
  Report Type: 
  Country: None (occurrence: None)
  Receive Date: 20051125
  Receipt Date: 20051116
  Transmission Date: 20060501
  Serious: Yes (Other)
  Sender: FDA-Public Use
  Company Number: S05-USA-05004-01

PATIENT
  Age: 29 Year
  Sex: Female

DRUGS (7)
  1. LEXAPRO [Suspect]
     Dosage: 10 MG QD PO
     Route: 048
     Dates: start: 20050701
  2. LEXAPRO [Suspect]
     Dosage: 10 MG QD PO
     Route: 048
     Dates: start: 20041101
  3. LEXAPRO [Suspect]
     Dosage: 10 MG QD PO
     Route: 048
     Dates: end: 20050701
  4. SINGULAIR [Suspect]
     Indication: ASTHMA
  5. ADVAIR DISKUS 100/50 [Suspect]
     Indication: ASTHMA
  6. IPRATROPIUM BROMIDE [Suspect]
     Indication: ASTHMA
  7. ALBUTEROL [Suspect]
     Indication: ASTHMA

REACTIONS (6)
  - ABNORMAL DREAMS [None]
  - ASTHMA [None]
  - CONDITION AGGRAVATED [None]
  - DRUG INTERACTION [None]
  - PANIC DISORDER [None]
  - RESPIRATORY TRACT INFECTION [None]
